FAERS Safety Report 10469309 (Version 1)
Quarter: 2014Q3

REPORT INFORMATION
  Report Type: Spontaneous
  Country: US (occurrence: None)
  Receive Date: 20140922
  Receipt Date: 20140922
  Transmission Date: 20150326
  Serious: No
  Sender: FDA-Public Use
  Company Number: None

PATIENT
  Age: 61 Year
  Sex: Female
  Weight: 96.4 kg

DRUGS (1)
  1. SANDOSTATIN LAR DEPOT [Suspect]
     Active Substance: OCTREOTIDE ACETATE
     Indication: CARCINOID SYNDROME
     Route: 030
     Dates: start: 20140918, end: 20140918

REACTIONS (3)
  - Injury associated with device [None]
  - Wrong technique in drug usage process [None]
  - Syringe issue [None]

NARRATIVE: CASE EVENT DATE: 20140918
